FAERS Safety Report 25202536 (Version 1)
Quarter: 2025Q2

REPORT INFORMATION
  Report Type: Spontaneous
  Country: US (occurrence: US)
  Receive Date: 20250416
  Receipt Date: 20250416
  Transmission Date: 20250716
  Serious: Yes (Other)
  Sender: MYLAN
  Company Number: US-MYLANLABS-2025M1032298

PATIENT
  Age: 56 Year
  Sex: Female

DRUGS (2)
  1. APIXABAN [Suspect]
     Active Substance: APIXABAN
     Indication: Portosplenomesenteric venous thrombosis
  2. APIXABAN [Suspect]
     Active Substance: APIXABAN
     Indication: Splenic vein thrombosis

REACTIONS (3)
  - Subcapsular splenic haematoma [Recovering/Resolving]
  - Haemorrhage [Recovering/Resolving]
  - Splenic cyst [Recovering/Resolving]
